FAERS Safety Report 16297504 (Version 7)
Quarter: 2021Q2

REPORT INFORMATION
  Report Type: Spontaneous
  Country: US (occurrence: US)
  Receive Date: 20190510
  Receipt Date: 20210510
  Transmission Date: 20210716
  Serious: Yes (Hospitalization)
  Sender: FDA-Public Use
  Company Number: US-PFIZER INC-2019199478

PATIENT
  Age: 75 Year
  Sex: Female

DRUGS (1)
  1. IBRANCE [Suspect]
     Active Substance: PALBOCICLIB
     Indication: BREAST CANCER FEMALE
     Dosage: 100 MG, UNK

REACTIONS (12)
  - Toothache [Recovering/Resolving]
  - Gastrooesophageal reflux disease [Unknown]
  - Hypoaesthesia [Unknown]
  - Illness [Unknown]
  - Fatigue [Unknown]
  - Weight decreased [Recovering/Resolving]
  - Hypertension [Unknown]
  - Asthenia [Unknown]
  - Gout [Unknown]
  - Dysphagia [Unknown]
  - Glycosylated haemoglobin decreased [Unknown]
  - Blood cholesterol increased [Unknown]
